FAERS Safety Report 4928237-3 (Version None)
Quarter: 2006Q1

REPORT INFORMATION
  Report Type: 
  Country: None (occurrence: None)
  Receive Date: 20060223
  Receipt Date: 20060222
  Transmission Date: 20060701
  Serious: Yes (Other)
  Sender: FDA-Public Use
  Company Number: US-2005-020641

PATIENT
  Age: 44 Year
  Sex: Female
  Weight: 49.9 kg

DRUGS (4)
  1. CLIMARA [Suspect]
     Indication: HORMONE REPLACEMENT THERAPY
     Dosage: SEE IMAGE
     Route: 062
     Dates: start: 20050622, end: 20050801
  2. CLIMARA [Suspect]
     Indication: HORMONE REPLACEMENT THERAPY
     Dosage: SEE IMAGE
     Route: 062
     Dates: start: 20050801, end: 20050905
  3. CLIMARA [Suspect]
     Indication: HORMONE REPLACEMENT THERAPY
     Dosage: SEE IMAGE
     Route: 062
     Dates: start: 20050901, end: 20051005
  4. CLIMARA [Suspect]
     Indication: HORMONE REPLACEMENT THERAPY
     Dosage: SEE IMAGE
     Route: 062
     Dates: start: 20051005

REACTIONS (12)
  - CHEST DISCOMFORT [None]
  - CONSTIPATION [None]
  - DYSPNOEA [None]
  - FEELING HOT [None]
  - HAEMORRHOIDS [None]
  - MIGRAINE [None]
  - PALPITATIONS [None]
  - PARAESTHESIA [None]
  - RETINAL OEDEMA [None]
  - VITREOUS DETACHMENT [None]
  - VITREOUS FLOATERS [None]
  - WEIGHT DECREASED [None]
